FAERS Safety Report 9417463 (Version 1)
Quarter: 2013Q3

REPORT INFORMATION
  Report Type: Spontaneous
  Country: US (occurrence: US)
  Receive Date: 20130724
  Receipt Date: 20130724
  Transmission Date: 20140515
  Serious: No
  Sender: FDA-Public Use
  Company Number: US-MYLANLABS-2012S1015811

PATIENT
  Age: 68 Year
  Sex: Female

DRUGS (2)
  1. TRIAMTERENE AND HYDROCHLOROTHIAZIDE CAPSULES [Suspect]
     Indication: BLOOD PRESSURE
     Dosage: 37.5MG/25MG
     Route: 048
     Dates: start: 201111, end: 20120730
  2. POTASSIUM [Concomitant]
     Indication: ELECTROLYTE SUBSTITUTION THERAPY
     Dates: end: 201207

REACTIONS (3)
  - Dyspnoea [Recovering/Resolving]
  - Blood potassium increased [Not Recovered/Not Resolved]
  - Asthenia [Recovering/Resolving]
